FAERS Safety Report 15657299 (Version 1)
Quarter: 2018Q4

REPORT INFORMATION
  Report Type: Spontaneous
  Country: ES (occurrence: ES)
  Receive Date: 20181126
  Receipt Date: 20181126
  Transmission Date: 20190205
  Serious: Yes (Other)
  Sender: FDA-Public Use
  Company Number: ES-SSP-2018SA179113AA

PATIENT
  Age: 52 Year
  Sex: Female

DRUGS (7)
  1. IBUPROFEN. [Interacting]
     Active Substance: IBUPROFEN
     Indication: PHARYNGITIS
  2. OSTEOPOR [DURAPATITE] [Suspect]
     Active Substance: TRIBASIC CALCIUM PHOSPHATE
  3. COLECALCIFEROL [Suspect]
     Active Substance: CHOLECALCIFEROL
  4. CELECOXIB. [Interacting]
     Active Substance: CELECOXIB
     Indication: ARTHRITIS
     Dosage: 200 MG, 15 IN 15 DAYS (15 DAYS YES AND 15 DAYS NO)
  5. LIDOCAINE. [Suspect]
     Active Substance: LIDOCAINE
  6. LEVOTHYROXINE SODIUM. [Suspect]
     Active Substance: LEVOTHYROXINE SODIUM
  7. MORPHINE [Suspect]
     Active Substance: MORPHINE

REACTIONS (8)
  - Insomnia [Unknown]
  - Anaphylactic shock [Unknown]
  - Depression [Unknown]
  - Angioedema [Unknown]
  - Drug interaction [Unknown]
  - Pruritus generalised [Not Recovered/Not Resolved]
  - Deafness unilateral [Unknown]
  - Back pain [Unknown]
